FAERS Safety Report 7492814-9 (Version None)
Quarter: 2011Q2

REPORT INFORMATION
  Report Type: 
  Country: None (occurrence: None)
  Receive Date: 20110512
  Receipt Date: 20110506
  Transmission Date: 20111010
  Serious: Yes (Other)
  Sender: FDA-Public Use
  Company Number: 2011SP020825

PATIENT
  Age: 62 Year
  Sex: Female

DRUGS (6)
  1. TEGRETOL [Concomitant]
  2. SAPHRIS [Suspect]
     Indication: BIPOLAR DISORDER
     Dosage: 5 MG, SL
     Route: 060
     Dates: start: 20110401, end: 20110430
  3. ATIVAN [Concomitant]
  4. LEXAPRO [Concomitant]
  5. LITHIUM CARBONATE [Concomitant]
  6. HALDOL [Concomitant]

REACTIONS (5)
  - DIZZINESS [None]
  - DYSARTHRIA [None]
  - PHARYNGEAL DISORDER [None]
  - FEELING JITTERY [None]
  - BALANCE DISORDER [None]
